FAERS Safety Report 8219107-6 (Version None)
Quarter: 2012Q1

REPORT INFORMATION
  Report Type: 
  Country: None (occurrence: None)
  Receive Date: 20120319
  Receipt Date: 20120309
  Transmission Date: 20120608
  Serious: Yes (Other)
  Sender: FDA-Public Use
  Company Number: US-JNJFOC-20120212182

PATIENT
  Age: 61 Year
  Sex: Female

DRUGS (3)
  1. XARELTO [Suspect]
     Indication: KNEE ARTHROPLASTY
     Route: 048
     Dates: start: 20120101
  2. ANTIHYPERTENSIVE AGENT [Concomitant]
     Indication: BLOOD PRESSURE
  3. ANALGESIC UNSPECIFIED [Concomitant]
     Indication: PAIN

REACTIONS (1)
  - HAEMORRHAGIC STROKE [None]
